FAERS Safety Report 12881228 (Version 3)
Quarter: 2019Q2

REPORT INFORMATION
  Report Type: Spontaneous
  Country: US (occurrence: US)
  Receive Date: 20161025
  Receipt Date: 20190614
  Transmission Date: 20190711
  Serious: No
  Sender: FDA-Public Use
  Company Number: US-JNJFOC-20161000960

PATIENT
  Age: 25 Year
  Sex: Male

DRUGS (27)
  1. RISPERDAL [Suspect]
     Active Substance: RISPERIDONE
     Indication: INTELLECTUAL DISABILITY
     Route: 048
     Dates: end: 200903
  2. RISPERDAL [Suspect]
     Active Substance: RISPERIDONE
     Indication: INTELLECTUAL DISABILITY
     Dosage: 1MG, 2 MG 3 TIMES DAILY + 1 MG EVERY 6 HOURS AS NEEDED
     Route: 048
     Dates: start: 200412
  3. RISPERDAL [Suspect]
     Active Substance: RISPERIDONE
     Indication: INTELLECTUAL DISABILITY
     Dosage: 3.5 TABS DAILY
     Route: 048
     Dates: start: 200311, end: 200401
  4. RISPERDAL [Suspect]
     Active Substance: RISPERIDONE
     Indication: AUTISM SPECTRUM DISORDER
     Dosage: 1MG/ML EVERY 2.5 HOURS DUSRING THE DAY UP TO 6 TIMES.
     Route: 048
     Dates: start: 200904
  5. RISPERDAL [Suspect]
     Active Substance: RISPERIDONE
     Indication: AUTISM SPECTRUM DISORDER
     Dosage: PLUS 1 MG EVERY 6 HOURS AS NEEDED
     Route: 048
     Dates: start: 2005, end: 200607
  6. RISPERDAL [Suspect]
     Active Substance: RISPERIDONE
     Indication: AUTISM SPECTRUM DISORDER
     Dosage: 1MG, 2 MG 3 TIMES DAILY + 1 MG EVERY 6 HOURS AS NEEDED
     Route: 048
     Dates: start: 200501, end: 200502
  7. RISPERDAL [Suspect]
     Active Substance: RISPERIDONE
     Indication: AUTISM SPECTRUM DISORDER
     Dosage: , 2 MG 3 TABS DAILY + 0.5 MG EVERY 6 HOURS AS NEEDED
     Route: 048
     Dates: start: 200502, end: 200503
  8. RISPERDAL [Suspect]
     Active Substance: RISPERIDONE
     Indication: AUTISM SPECTRUM DISORDER
     Route: 048
     Dates: start: 1996, end: 2002
  9. RISPERDAL [Suspect]
     Active Substance: RISPERIDONE
     Indication: INTELLECTUAL DISABILITY
     Dosage: 1MG/ML UPTO 7 TIMES A DAY, MAY TAKE 1 MG EVERY 6 HOURS AS NEEDED
     Route: 048
     Dates: start: 200608, end: 200802
  10. RISPERDAL [Suspect]
     Active Substance: RISPERIDONE
     Indication: AUTISM SPECTRUM DISORDER
     Route: 048
     Dates: start: 200803, end: 200901
  11. RISPERDAL [Suspect]
     Active Substance: RISPERIDONE
     Indication: INTELLECTUAL DISABILITY
     Dosage: 3.5 TABS DAILY
     Route: 048
     Dates: end: 2003
  12. RISPERDAL [Suspect]
     Active Substance: RISPERIDONE
     Indication: INTELLECTUAL DISABILITY
     Dosage: 1 MG,  2 MG 3 TIMES DAILY + 1 MG EVERY 6 HOURS AS NEEDED
     Route: 048
     Dates: start: 200503, end: 200507
  13. RISPERDAL [Suspect]
     Active Substance: RISPERIDONE
     Indication: AUTISM SPECTRUM DISORDER
     Dosage: 3.5 TABS DAILY
     Route: 048
     Dates: start: 200311, end: 200401
  14. RISPERDAL [Suspect]
     Active Substance: RISPERIDONE
     Indication: AUTISM SPECTRUM DISORDER
     Dosage: 4 TABS DAILY
     Route: 048
     Dates: start: 200402, end: 200406
  15. RISPERDAL [Suspect]
     Active Substance: RISPERIDONE
     Indication: AUTISM SPECTRUM DISORDER
     Dosage: 3.5 TABS DAILY
     Route: 048
     Dates: end: 2003
  16. RISPERDAL [Suspect]
     Active Substance: RISPERIDONE
     Indication: INTELLECTUAL DISABILITY
     Route: 048
     Dates: start: 200803, end: 200901
  17. RISPERDAL [Suspect]
     Active Substance: RISPERIDONE
     Indication: INTELLECTUAL DISABILITY
     Route: 048
     Dates: start: 1996, end: 2002
  18. RISPERDAL [Suspect]
     Active Substance: RISPERIDONE
     Indication: INTELLECTUAL DISABILITY
     Dosage: 4 TABS DAILY
     Route: 048
     Dates: start: 200402, end: 200406
  19. RISPERDAL [Suspect]
     Active Substance: RISPERIDONE
     Indication: AUTISM SPECTRUM DISORDER
     Dosage: 1MG, 2 MG 3 TIMES DAILY + 1 MG EVERY 6 HOURS AS NEEDED
     Route: 048
     Dates: start: 200412
  20. RISPERDAL [Suspect]
     Active Substance: RISPERIDONE
     Indication: INTELLECTUAL DISABILITY
     Dosage: , 2 MG 3 TABS DAILY + 0.5 MG EVERY 6 HOURS AS NEEDED
     Route: 048
     Dates: start: 200502, end: 200503
  21. RISPERDAL [Suspect]
     Active Substance: RISPERIDONE
     Indication: INTELLECTUAL DISABILITY
     Dosage: PLUS 1 MG EVERY 6 HOURS AS NEEDED
     Route: 048
     Dates: start: 2005, end: 200607
  22. RISPERDAL [Suspect]
     Active Substance: RISPERIDONE
     Indication: INTELLECTUAL DISABILITY
     Dosage: 1MG, 2 MG 3 TIMES DAILY + 1 MG EVERY 6 HOURS AS NEEDED
     Route: 048
     Dates: start: 200501, end: 200502
  23. RISPERDAL [Suspect]
     Active Substance: RISPERIDONE
     Indication: AUTISM SPECTRUM DISORDER
     Dosage: 1 MG,  2 MG 3 TIMES DAILY + 1 MG EVERY 6 HOURS AS NEEDED
     Route: 048
     Dates: start: 200503, end: 200507
  24. RISPERDAL [Suspect]
     Active Substance: RISPERIDONE
     Indication: INTELLECTUAL DISABILITY
     Dosage: 1MG/ML EVERY 2.5 HOURS DUSRING THE DAY UP TO 6 TIMES.
     Route: 048
     Dates: start: 200904
  25. RISPERDAL [Suspect]
     Active Substance: RISPERIDONE
     Indication: AUTISM SPECTRUM DISORDER
     Route: 048
     Dates: end: 200903
  26. RISPERDAL [Suspect]
     Active Substance: RISPERIDONE
     Indication: AUTISM SPECTRUM DISORDER
     Dosage: 1MG/ML UPTO 7 TIMES A DAY, MAY TAKE 1 MG EVERY 6 HOURS AS NEEDED
     Route: 048
     Dates: start: 200608, end: 200802
  27. RISPERIDONE. [Suspect]
     Active Substance: RISPERIDONE
     Indication: PRODUCT USED FOR UNKNOWN INDICATION
     Route: 048

REACTIONS (1)
  - Gynaecomastia [Unknown]

NARRATIVE: CASE EVENT DATE: 20140123
